FAERS Safety Report 8168619 (Version 3)
Quarter: 2012Q4

REPORT INFORMATION
  Report Type: 
  Country: US (occurrence: US)
  Receive Date: 20111005
  Receipt Date: 20121029
  Transmission Date: 20130627
  Serious: Yes (Hospitalization)
  Sender: FDA-Public Use
  Company Number: US-BIOGENIDEC-2011BI037484

PATIENT
  Age: 27 Year
  Sex: Male

DRUGS (1)
  1. TYSABRI [Suspect]
     Indication: MULTIPLE SCLEROSIS
     Route: 042
     Dates: start: 20090112

REACTIONS (4)
  - Substance abuse [Unknown]
  - Drug dependence [Recovered/Resolved]
  - Blindness transient [Not Recovered/Not Resolved]
  - Fall [Recovered/Resolved]
